FAERS Safety Report 10067398 (Version 2)
Quarter: 2014Q2

REPORT INFORMATION
  Report Type: Spontaneous
  Country: US (occurrence: None)
  Receive Date: 20140407
  Receipt Date: 20140512
  Transmission Date: 20141212
  Serious: Yes (Other)
  Sender: FDA-Public Use
  Company Number: 2014P1002631

PATIENT
  Age: 23 Year
  Sex: Female

DRUGS (2)
  1. MYORISAN [Suspect]
     Indication: ACNE
     Route: 048
     Dates: start: 20131209, end: 20140321
  2. ORTHO TRI-CYCLEN LO [Concomitant]

REACTIONS (10)
  - Fatigue [None]
  - Lip dry [None]
  - Myalgia [None]
  - Arthralgia [None]
  - Headache [None]
  - Mood altered [None]
  - Depression [None]
  - Weight decreased [None]
  - Night blindness [None]
  - Visual impairment [None]
